FAERS Safety Report 10736207 (Version 1)
Quarter: 2015Q1

REPORT INFORMATION
  Report Type: Spontaneous
  Country: US (occurrence: US)
  Receive Date: 20150126
  Receipt Date: 20150126
  Transmission Date: 20150721
  Serious: Yes (Death, Other)
  Sender: FDA-Public Use
  Company Number: US-MERCK-1501USA007574

PATIENT
  Age: 17 Year

DRUGS (5)
  1. QUETIAPINE FUMARATE. [Suspect]
     Active Substance: QUETIAPINE FUMARATE
     Dosage: UNK
  2. DIPHENHYDRAMINE HYDROCHLORIDE. [Suspect]
     Active Substance: DIPHENHYDRAMINE HYDROCHLORIDE
     Dosage: UNK
  3. DEXTROMETHORPHAN [Suspect]
     Active Substance: DEXTROMETHORPHAN
     Dosage: UNK
  4. LAMOTRIGINE. [Suspect]
     Active Substance: LAMOTRIGINE
     Dosage: UNK
  5. CHLOR-TRIMETON [Suspect]
     Active Substance: CHLORPHENIRAMINE MALEATE
     Dosage: UNK
     Route: 048

REACTIONS (2)
  - Completed suicide [Fatal]
  - Toxicity to various agents [Fatal]
